FAERS Safety Report 13511050 (Version 4)
Quarter: 2017Q2

REPORT INFORMATION
  Report Type: Spontaneous
  Country: US (occurrence: US)
  Receive Date: 20170503
  Receipt Date: 20170512
  Transmission Date: 20170830
  Serious: Yes (Other)
  Sender: FDA-Public Use
  Company Number: US-ALLERGAN-1716969US

PATIENT
  Age: 34 Year
  Sex: Female

DRUGS (1)
  1. LILETTA [Suspect]
     Active Substance: LEVONORGESTREL
     Indication: CONTRACEPTION
     Dosage: 52 MG
     Route: 015
     Dates: start: 201611, end: 20170501

REACTIONS (3)
  - Weight increased [Unknown]
  - Complication of device removal [Recovered/Resolved]
  - Uterine haemorrhage [Unknown]
